FAERS Safety Report 24711209 (Version 1)
Quarter: 2024Q4

REPORT INFORMATION
  Report Type: Spontaneous
  Country: US (occurrence: US)
  Receive Date: 20241209
  Receipt Date: 20241209
  Transmission Date: 20250115
  Serious: Yes (Other)
  Sender: JOHNSON AND JOHNSON
  Company Number: US-JNJFOC-20241212660

PATIENT
  Sex: Female

DRUGS (6)
  1. XARELTO [Suspect]
     Active Substance: RIVAROXABAN
     Indication: Thrombosis
     Route: 048
  2. XARELTO [Suspect]
     Active Substance: RIVAROXABAN
     Route: 048
     Dates: start: 2024
  3. SPIRONOLACTONE [Suspect]
     Active Substance: SPIRONOLACTONE
  4. FUROSEMIDE [Suspect]
     Active Substance: FUROSEMIDE
  5. PREDNISONE [Suspect]
     Active Substance: PREDNISONE
  6. CALCIUM [Concomitant]
     Active Substance: CALCIUM

REACTIONS (10)
  - Pericardial effusion [Unknown]
  - Hepatic cirrhosis [Unknown]
  - Angle closure glaucoma [Unknown]
  - Haemoglobin decreased [Unknown]
  - Peripheral swelling [Unknown]
  - Abdominal distension [Unknown]
  - Drug hypersensitivity [Unknown]
  - Myalgia [Unknown]
  - Glycosylated haemoglobin decreased [Unknown]
  - Arthritis [Unknown]
